FAERS Safety Report 22103105 (Version 1)
Quarter: 2023Q1

REPORT INFORMATION
  Report Type: Spontaneous
  Country: US (occurrence: US)
  Receive Date: 20230316
  Receipt Date: 20230316
  Transmission Date: 20230417
  Serious: Yes (Hospitalization)
  Sender: FDA-Public Use
  Company Number: US-PFIZER INC-202300111938

PATIENT
  Age: 56 Year
  Sex: Female

DRUGS (2)
  1. IBRANCE [Suspect]
     Active Substance: PALBOCICLIB
     Dosage: 125 MG, CYCLIC (125MG ORALLY DAILY, 3 WEEKS ON, ONE WEEK OFF )
     Route: 048
     Dates: start: 20230104
  2. LETROZOLE [Concomitant]
     Active Substance: LETROZOLE
     Dosage: UNK

REACTIONS (3)
  - Gait inability [Recovering/Resolving]
  - White blood cell count decreased [Not Recovered/Not Resolved]
  - Neoplasm progression [Recovering/Resolving]
